FAERS Safety Report 6344628-0 (Version None)
Quarter: 2009Q3

REPORT INFORMATION
  Report Type: 
  Country: None (occurrence: None)
  Receive Date: 20090903
  Receipt Date: 20090818
  Transmission Date: 20100115
  Serious: Yes (Hospitalization, Disabling)
  Sender: FDA-Public Use
  Company Number: 2008-183374-NL

PATIENT
  Age: 33 Year
  Sex: Female
  Weight: 90.7 kg

DRUGS (9)
  1. NUVARING [Suspect]
     Indication: DYSMENORRHOEA
     Dosage: 1 DF;QM
     Dates: start: 20060501, end: 20060801
  2. NUVARING [Suspect]
     Indication: MENOMETRORRHAGIA
     Dosage: 1 DF;QM
     Dates: start: 20060501, end: 20060801
  3. NUVARING [Suspect]
     Indication: MENSTRUATION IRREGULAR
     Dosage: 1 DF;QM
     Dates: start: 20060501, end: 20060801
  4. NUVARING [Suspect]
     Indication: OFF LABEL USE
     Dosage: 1 DF;QM
     Dates: start: 20060501, end: 20060801
  5. TYLENOL [Concomitant]
  6. KEFLEX [Concomitant]
  7. HYDROCHLOROTHIAZIDE [Concomitant]
  8. PROMETHAZINE [Concomitant]
  9. OXYCODONE HCL AND ACETAMINOPHEN [Concomitant]

REACTIONS (8)
  - ABDOMINOPLASTY [None]
  - HEART RATE INCREASED [None]
  - LEUKOCYTOSIS [None]
  - MICROCYTIC ANAEMIA [None]
  - PULMONARY EMBOLISM [None]
  - PYREXIA [None]
  - RESPIRATORY RATE INCREASED [None]
  - THROMBOSIS [None]
